FAERS Safety Report 10214306 (Version 1)
Quarter: 2014Q2

REPORT INFORMATION
  Report Type: Spontaneous
  Country: US (occurrence: US)
  Receive Date: 20140603
  Receipt Date: 20140603
  Transmission Date: 20141212
  Serious: No
  Sender: FDA-Public Use
  Company Number: US-PFIZER INC-2014150108

PATIENT
  Age: 60 Year
  Sex: Female
  Weight: 72.56 kg

DRUGS (5)
  1. VENLAFAXINE HCL [Suspect]
     Indication: AFFECTIVE DISORDER
     Dosage: UNK
  2. VENLAFAXINE HCL [Suspect]
     Indication: HOT FLUSH
  3. VITAMIN D [Concomitant]
     Indication: OSTEOPOROSIS
     Dosage: UNK
  4. COENZYME Q10 [Concomitant]
     Dosage: UNK
  5. VESICARE [Concomitant]
     Indication: URINARY INCONTINENCE
     Dosage: 10 MG, DAILY

REACTIONS (1)
  - Drug ineffective [Unknown]
